FAERS Safety Report 24368492 (Version 1)
Quarter: 2024Q3

REPORT INFORMATION
  Report Type: Spontaneous
  Country: KR (occurrence: KR)
  Receive Date: 20240926
  Receipt Date: 20240926
  Transmission Date: 20241017
  Serious: Yes (Death, Other)
  Sender: MERCK
  Company Number: KR-009507513-2409KOR008282

PATIENT
  Age: 37 Year
  Sex: Female
  Weight: 75.5 kg

DRUGS (2)
  1. PREVYMIS [Suspect]
     Active Substance: LETERMOVIR
     Indication: Antiviral prophylaxis
     Dosage: ONCE DAILY
     Route: 048
     Dates: start: 20211022, end: 20211026
  2. PREVYMIS [Suspect]
     Active Substance: LETERMOVIR
     Dosage: ONCE DAILY
     Route: 048
     Dates: start: 20211111, end: 20220124

REACTIONS (1)
  - Multiple organ dysfunction syndrome [Fatal]

NARRATIVE: CASE EVENT DATE: 20220420
